FAERS Safety Report 9435828 (Version 1)
Quarter: 2013Q3

REPORT INFORMATION
  Report Type: Spontaneous
  Country: IT (occurrence: IT)
  Receive Date: 20130801
  Receipt Date: 20130801
  Transmission Date: 20140515
  Serious: Yes (Other)
  Sender: FDA-Public Use
  Company Number: IT-ASTRAZENECA-2013SE56006

PATIENT
  Age: 10057 Day
  Sex: Female

DRUGS (1)
  1. SEROQUEL [Suspect]
     Indication: PSYCHOTIC DISORDER
     Route: 048
     Dates: start: 20130506, end: 20130506

REACTIONS (3)
  - Drug abuse [Unknown]
  - Anxiety [Recovering/Resolving]
  - Depression [Recovering/Resolving]
